FAERS Safety Report 9455370 (Version 1)
Quarter: 2013Q3

REPORT INFORMATION
  Report Type: Report from Study
  Country: CN (occurrence: CN)
  Receive Date: 20130813
  Receipt Date: 20130813
  Transmission Date: 20140515
  Serious: Yes (Hospitalization)
  Sender: FDA-Public Use
  Company Number: PHHO2010CN05047

PATIENT
  Age: 76 Year
  Sex: Male
  Weight: 72 kg

DRUGS (1)
  1. QAB149 [Suspect]
     Indication: CHRONIC OBSTRUCTIVE PULMONARY DISEASE
     Dosage: 150 UG, UNK
     Route: 055
     Dates: start: 20100222, end: 20100331

REACTIONS (4)
  - Benign prostatic hyperplasia [Recovered/Resolved]
  - Urinary retention [Recovered/Resolved]
  - Abdominal pain lower [Recovered/Resolved]
  - Concomitant disease progression [Recovered/Resolved]
